FAERS Safety Report 4399616-0 (Version None)
Quarter: 2004Q3

REPORT INFORMATION
  Report Type: 
  Country: None (occurrence: None)
  Receive Date: 20040712
  Receipt Date: 20040628
  Transmission Date: 20050211
  Serious: Yes (Congenital Anomaly)
  Sender: FDA-Public Use
  Company Number: 2004-UK-00595UK

PATIENT

DRUGS (3)
  1. NEVIRAPINE [Suspect]
     Indication: HIV INFECTION
     Dosage: 400 MG ; IU
     Route: 015
     Dates: start: 20040101
  2. ZIDOVUDINE [Concomitant]
  3. DIDANOSINE (DIDANOSINE) [Concomitant]

REACTIONS (3)
  - CONGENITAL CENTRAL NERVOUS SYSTEM ANOMALY [None]
  - DRUG EXPOSURE DURING PREGNANCY [None]
  - PULMONARY HYPOPLASIA [None]
